FAERS Safety Report 9241637 (Version 2)
Quarter: 2013Q2

REPORT INFORMATION
  Report Type: Report from Study
  Country: CZ (occurrence: CZ)
  Receive Date: 20130419
  Receipt Date: 20130513
  Transmission Date: 20140414
  Serious: Yes (Hospitalization)
  Sender: FDA-Public Use
  Company Number: CZ-BIOGENIDEC-2012BI052659

PATIENT
  Age: 38 Year
  Sex: Male
  Weight: 103 kg

DRUGS (4)
  1. BG00012 [Suspect]
     Indication: MULTIPLE SCLEROSIS
     Dates: start: 20100310
  2. LIPANTHYL [Concomitant]
     Indication: HYPERLIPIDAEMIA
     Route: 048
     Dates: start: 200710
  3. LOKREN [Concomitant]
     Indication: HYPERTENSION
     Route: 048
     Dates: start: 200602
  4. LORISTA [Concomitant]
     Indication: HYPERTENSION
     Route: 048
     Dates: start: 200604

REACTIONS (1)
  - Aortic valve replacement [Recovered/Resolved]
